FAERS Safety Report 4741823-9 (Version None)
Quarter: 2005Q3

REPORT INFORMATION
  Report Type: 
  Country: None (occurrence: None)
  Receive Date: 20050801
  Receipt Date: 20050619
  Transmission Date: 20060218
  Serious: No
  Sender: FDA-Public Use
  Company Number: 2005PV000097

PATIENT
  Age: 46 Year
  Sex: Male
  Weight: 97.5234 kg

DRUGS (9)
  1. BYETTA [Suspect]
     Indication: DIABETES MELLITUS NON-INSULIN-DEPENDENT
     Dosage: 5 UG;BID;SC
     Route: 058
     Dates: start: 20050614
  2. NORVASC [Concomitant]
  3. HYZAAR [Concomitant]
  4. METAGLIP [Concomitant]
  5. ACTOS [Concomitant]
  6. LESCOL ^NORVARTIS^ [Concomitant]
  7. TRICOR [Concomitant]
  8. ADVIL [Concomitant]
  9. BENADRYL ^WARNER-LAMBERT^ [Concomitant]

REACTIONS (2)
  - HEADACHE [None]
  - LETHARGY [None]
